FAERS Safety Report 10265052 (Version 1)
Quarter: 2014Q2

REPORT INFORMATION
  Report Type: Spontaneous
  Country: NZ (occurrence: None)
  Receive Date: 20140624
  Receipt Date: 20140624
  Transmission Date: 20141212
  Serious: Yes (Other)
  Sender: FDA-Public Use
  Company Number: NZ-20140002

PATIENT
  Age: 53 Year
  Sex: Female

DRUGS (2)
  1. GADOTERIC ACID [Suspect]
     Indication: NUCLEAR MAGNETIC RESONANCE IMAGING BRAIN
     Route: 040
     Dates: start: 20140611, end: 20140611
  2. ZYRTEC (CETIRIZINE HYDROCHLORIDE) (CETIRIZINE HYDROCHLORIDE) [Concomitant]

REACTIONS (4)
  - Flushing [None]
  - Eye swelling [None]
  - Swelling face [None]
  - Local swelling [None]
